FAERS Safety Report 18901186 (Version 1)
Quarter: 2021Q1

REPORT INFORMATION
  Report Type: Other
  Country: US (occurrence: US)
  Receive Date: 20210217
  Receipt Date: 20210217
  Transmission Date: 20210420
  Serious: Yes (Hospitalization)
  Sender: FDA-Public Use
  Company Number: US-ROCHE-2765379

PATIENT
  Sex: Female

DRUGS (22)
  1. ELAVIL [Concomitant]
     Active Substance: AMITRIPTYLINE HYDROCHLORIDE
  2. INDERAL [Concomitant]
     Active Substance: PROPRANOLOL HYDROCHLORIDE
  3. ACTEMRA [Suspect]
     Active Substance: TOCILIZUMAB
     Indication: OSTEOARTHRITIS
  4. BIOTIN [Concomitant]
     Active Substance: BIOTIN
  5. ZOCOR [Concomitant]
     Active Substance: SIMVASTATIN
  6. IMITREX [Concomitant]
     Active Substance: SUMATRIPTAN SUCCINATE
  7. ACTEMRA [Suspect]
     Active Substance: TOCILIZUMAB
  8. PROVENTIL HFA [Concomitant]
     Active Substance: ALBUTEROL SULFATE
  9. CELEXA [Concomitant]
     Active Substance: CITALOPRAM HYDROBROMIDE
  10. MEDROL [Concomitant]
     Active Substance: METHYLPREDNISOLONE
  11. ACTEMRA [Suspect]
     Active Substance: TOCILIZUMAB
  12. VITAMIN D3 [Concomitant]
     Active Substance: CHOLECALCIFEROL
     Dosage: 1000 UNITS
  13. GINKO BILOBA [Concomitant]
     Active Substance: GINKGO
     Route: 048
  14. ACTEMRA [Suspect]
     Active Substance: TOCILIZUMAB
  15. ACTEMRA [Suspect]
     Active Substance: TOCILIZUMAB
  16. FOSAMAX [Concomitant]
     Active Substance: ALENDRONATE SODIUM
  17. CALCIUM [Concomitant]
     Active Substance: CALCIUM
     Route: 048
  18. MEDROL [Concomitant]
     Active Substance: METHYLPREDNISOLONE
  19. MULTIVITAMIN [Concomitant]
     Active Substance: VITAMINS
  20. ACTEMRA [Suspect]
     Active Substance: TOCILIZUMAB
     Indication: OVERLAP SYNDROME
     Dosage: INJECT 162MG SUBCUTANEOUSLY EVERY 7 DAY(S)
     Route: 058
  21. ANTIVERT [Concomitant]
     Active Substance: MECLIZINE HYDROCHLORIDE
  22. METHOTREXATE. [Concomitant]
     Active Substance: METHOTREXATE

REACTIONS (3)
  - COVID-19 [Unknown]
  - Off label use [Unknown]
  - Intentional product use issue [Unknown]
